FAERS Safety Report 4434486-3 (Version None)
Quarter: 2004Q3

REPORT INFORMATION
  Report Type: 
  Country: None (occurrence: None)
  Receive Date: 20040726
  Receipt Date: 20040427
  Transmission Date: 20050211
  Serious: No
  Sender: FDA-Public Use
  Company Number: USA040361961

PATIENT
  Age: 80 Year
  Sex: Female
  Weight: 57 kg

DRUGS (8)
  1. FORTEO [Suspect]
     Indication: OSTEOPOROSIS
     Dosage: 20 UG 1 DAY
     Dates: start: 20030101
  2. LANOXIN [Concomitant]
  3. ASPIRIN [Concomitant]
  4. NASONEX [Concomitant]
  5. SYNTHROID [Concomitant]
  6. QUINDINE [Concomitant]
  7. ZANTAC [Concomitant]
  8. COSOPT [Concomitant]

REACTIONS (7)
  - BLISTER [None]
  - BLOOD SODIUM DECREASED [None]
  - CLUMSINESS [None]
  - DYSARTHRIA [None]
  - FALL [None]
  - PRURITUS [None]
  - RASH [None]
